FAERS Safety Report 8113571 (Version 5)
Quarter: 2015Q4

REPORT INFORMATION
  Report Type: Spontaneous
  Country: US (occurrence: US)
  Receive Date: 20110830
  Receipt Date: 20151120
  Transmission Date: 20160305
  Serious: Yes (Hospitalization, Disabling, Other)
  Sender: FDA-Public Use
  Company Number: US-BAYER-2011-076571

PATIENT
  Age: 24 Year
  Sex: Female
  Weight: 58.96 kg

DRUGS (2)
  1. YASMIN [Suspect]
     Active Substance: DROSPIRENONE\ETHINYL ESTRADIOL
     Indication: CONTRACEPTION
     Dosage: UNK
     Dates: start: 200512, end: 200708
  2. YASMIN [Suspect]
     Active Substance: DROSPIRENONE\ETHINYL ESTRADIOL
     Indication: PREMENSTRUAL SYNDROME

REACTIONS (11)
  - Amnesia [None]
  - Pain [None]
  - Paraesthesia [None]
  - Cerebrovascular accident [None]
  - Embolism arterial [None]
  - Personality change [None]
  - Aphasia [None]
  - Headache [None]
  - Vision blurred [None]
  - Atrial septal defect [None]
  - Injury [None]

NARRATIVE: CASE EVENT DATE: 20070803
